FAERS Safety Report 10753828 (Version 4)
Quarter: 2015Q3

REPORT INFORMATION
  Report Type: Spontaneous
  Country: DK (occurrence: DK)
  Receive Date: 20150202
  Receipt Date: 20150818
  Transmission Date: 20151125
  Serious: Yes (Death, Life-Threatening, Hospitalization)
  Sender: FDA-Public Use
  Company Number: DK-ROCHE-1525687

PATIENT
  Age: 80 Year
  Sex: Male

DRUGS (15)
  1. DIURAL (DENMARK) [Concomitant]
     Indication: DIURETIC THERAPY
     Route: 048
     Dates: start: 20131220
  2. ONCOVIN [Suspect]
     Active Substance: VINCRISTINE SULFATE
     Indication: DIFFUSE LARGE B-CELL LYMPHOMA
     Dosage: FORM STRENGTH: 1 MG/ML?CHEMO GIVEN: ON 13/DEC/2013, ON 03/JAN, ON 24/JAN, ON 14/FEB, ON 07/MAR, ON 2
     Route: 042
     Dates: start: 20131213, end: 20140513
  3. KALEORID [Concomitant]
     Active Substance: POTASSIUM CHLORIDE
     Indication: MINERAL SUPPLEMENTATION
     Route: 048
     Dates: start: 20131220, end: 20141212
  4. TRADOLAN [Concomitant]
     Active Substance: TRAMADOL
     Indication: PAIN
     Route: 065
     Dates: start: 20141102, end: 20141118
  5. MABTHERA [Suspect]
     Active Substance: RITUXIMAB
     Indication: DIFFUSE LARGE B-CELL LYMPHOMA
     Dosage: CHEMO GIVEN: ON 13/DEC/2013, ON 03/JAN, ON 24/JAN, ON 14/FEB, ON 07/MAR, ON 28/MAR, ON 22/APR AND ON
     Route: 042
     Dates: start: 20131213, end: 20140513
  6. AMLODIPIN [Concomitant]
     Active Substance: AMLODIPINE BESYLATE
     Indication: HYPERTENSION
     Route: 048
     Dates: start: 20121113, end: 20141130
  7. CLOPIDOGREL [Concomitant]
     Active Substance: CLOPIDOGREL BISULFATE
     Indication: THROMBOSIS PROPHYLAXIS
     Route: 065
     Dates: start: 20140918, end: 20141222
  8. MATRIFEN [Concomitant]
     Active Substance: FENTANYL
     Indication: PAIN
     Route: 065
     Dates: start: 20141102, end: 20141120
  9. CAELYX [Suspect]
     Active Substance: DOXORUBICIN HYDROCHLORIDE
     Indication: DIFFUSE LARGE B-CELL LYMPHOMA
     Dosage: CONCENTRATE FOR SOLUTION FOR INJECTION?GIVEN IN THE LAST 2 SERIES ON 22/APR AND ON 13/MAY/2014.?40MG
     Route: 042
     Dates: start: 20140422, end: 20140513
  10. SENDOXAN [Suspect]
     Active Substance: CYCLOPHOSPHAMIDE
     Indication: DIFFUSE LARGE B-CELL LYMPHOMA
     Dosage: INFUSION TIME 30-60 MIN?CHEMO GIVEN: ON 13/DEC/2013, ON 03/JAN, ON 24/JAN, ON 14/FEB, ON 07/MAR, ON
     Route: 042
     Dates: start: 20131213, end: 20140513
  11. PREDNISOLON [Suspect]
     Active Substance: PREDNISOLONE
     Indication: DIFFUSE LARGE B-CELL LYMPHOMA
     Dosage: REPORTED AS PREDNISOLON ^DAK^?100 MG MORNING DAY 1-5 IN CONNECTION WITH CHEMOTHERAPY.?ON 13/DEC/2013
     Route: 048
     Dates: start: 20131213, end: 20140513
  12. IMOCLONE [Concomitant]
     Active Substance: ZOPICLONE
     Indication: INSOMNIA
     Route: 048
     Dates: start: 20131219, end: 20141222
  13. ADRIAMYCIN [Suspect]
     Active Substance: DOXORUBICIN HYDROCHLORIDE
     Indication: DIFFUSE LARGE B-CELL LYMPHOMA
     Dosage: GIVEN IN THE FIRST 6 SERIES: ON 13/DEC/2013, ON 03/JAN, ON 24/JAN, ON 14/FEB, ON 07/MAR AND ON 28/MA
     Route: 042
     Dates: start: 20131213, end: 20140328
  14. PINEX (DENMARK) [Concomitant]
     Indication: PAIN
     Route: 065
     Dates: start: 20141102, end: 20150105
  15. ACICLOVIR [Concomitant]
     Active Substance: ACYCLOVIR

REACTIONS (2)
  - Pulmonary fibrosis [Fatal]
  - Dyspnoea [Unknown]

NARRATIVE: CASE EVENT DATE: 201411
